FAERS Safety Report 26087715 (Version 1)
Quarter: 2025Q4

REPORT INFORMATION
  Report Type: Spontaneous
  Country: IN (occurrence: IN)
  Receive Date: 20251125
  Receipt Date: 20251125
  Transmission Date: 20260119
  Serious: Yes (Other)
  Sender: NOVARTIS
  Company Number: IN-002147023-NVSC2025IN179252

PATIENT
  Sex: Female

DRUGS (1)
  1. RIBOCICLIB [Suspect]
     Active Substance: RIBOCICLIB
     Indication: Product used for unknown indication
     Dosage: 600 MG, QD
     Route: 048

REACTIONS (9)
  - Invasive ductal breast carcinoma [Unknown]
  - Metastases to lymph nodes [Unknown]
  - Metastases to pleura [Unknown]
  - Malignant neoplasm progression [Unknown]
  - Breast mass [Unknown]
  - Pleural effusion [Unknown]
  - Pulmonary mass [Unknown]
  - Hepatic lesion [Unknown]
  - Bone lesion [Unknown]
